FAERS Safety Report 5073096-4 (Version None)
Quarter: 2006Q3

REPORT INFORMATION
  Report Type: 
  Country: None (occurrence: None)
  Receive Date: 20060802
  Receipt Date: 20060711
  Transmission Date: 20061208
  Serious: Yes (Hospitalization)
  Sender: FDA-Public Use
  Company Number: US200602000229

PATIENT
  Age: 59 Year
  Sex: Male
  Weight: 75.6 kg

DRUGS (15)
  1. PEMETREXED (PEMETREXED) VIAL [Suspect]
     Indication: NON-SMALL CELL LUNG CANCER
     Dosage: 995 MG/M2, OTHER, INTRAVENOUS
     Route: 042
     Dates: start: 20051212, end: 20060123
  2. CARBOPLATIN [Suspect]
     Indication: NON-SMALL CELL LUNG CANCER
     Dosage: 2 UNK, OTHER, INTRAVENOUS
     Route: 042
     Dates: start: 20051212, end: 20060123
  3. RADIATION (RADIATION) UNKNOWN [Suspect]
     Indication: NON-SMALL CELL LUNG CANCER
     Dosage: 630 UNK, DAILY (1/D)
     Dates: start: 20051212, end: 20060130
  4. FOLIC ACID [Concomitant]
  5. CYANOCOBALAMIN [Concomitant]
  6. ADVAIR DISKUS 100/50 [Concomitant]
  7. XANAX [Concomitant]
  8. COMPAZINE [Concomitant]
  9. EMEND [Concomitant]
  10. PRILOSEC [Concomitant]
  11. KYTRIL [Concomitant]
  12. REGLAN [Concomitant]
  13. KEFLEX [Concomitant]
  14. ZOFRAN [Concomitant]
  15. AMBIEN [Concomitant]

REACTIONS (1)
  - RADIATION OESOPHAGITIS [None]
